FAERS Safety Report 9901086 (Version 2)
Quarter: 2014Q1

REPORT INFORMATION
  Report Type: Spontaneous
  Country: US (occurrence: US)
  Receive Date: 20140217
  Receipt Date: 20140307
  Transmission Date: 20141002
  Serious: No
  Sender: FDA-Public Use
  Company Number: US-PFIZER INC-2014042605

PATIENT
  Age: 59 Year
  Sex: Female
  Weight: 55.3 kg

DRUGS (7)
  1. DILANTIN-125 [Suspect]
     Indication: CONVULSION
     Dosage: UNK
  2. ROXICODONE [Concomitant]
     Dosage: UNK
  3. PROVIGIL [Concomitant]
     Dosage: UNK
  4. TAPAZOLE [Concomitant]
     Indication: THYROID DISORDER
     Dosage: 2.5 MG, 1X/DAY
  5. DURAGESIC [Concomitant]
     Dosage: UNK
  6. TYLENOL [Concomitant]
     Dosage: UNK
  7. LYRICA [Concomitant]
     Indication: FIBROMYALGIA
     Dosage: 75 MG, 2X/DAY
     Route: 048
     Dates: start: 201401

REACTIONS (3)
  - Drug ineffective [Unknown]
  - Tremor [Unknown]
  - Drug hypersensitivity [Unknown]
